FAERS Safety Report 6307327-7 (Version None)
Quarter: 2009Q3

REPORT INFORMATION
  Report Type: 
  Country: None (occurrence: None)
  Receive Date: 20090813
  Receipt Date: 20090804
  Transmission Date: 20100115
  Serious: Yes (Hospitalization)
  Sender: FDA-Public Use
  Company Number: US-CELGENEUS-163-20785-09080238

PATIENT
  Sex: Female

DRUGS (2)
  1. THALOMID [Suspect]
     Route: 048
     Dates: start: 20090401
  2. THALOMID [Suspect]
     Route: 048
     Dates: start: 20090601, end: 20090701

REACTIONS (2)
  - GAIT DISTURBANCE [None]
  - RENAL DISORDER [None]
